FAERS Safety Report 15722292 (Version 2)
Quarter: 2018Q4

REPORT INFORMATION
  Report Type: Spontaneous
  Country: US (occurrence: US)
  Receive Date: 20181214
  Receipt Date: 20181226
  Transmission Date: 20190205
  Serious: No
  Sender: FDA-Public Use
  Company Number: US-SHIRE-US201847786

PATIENT
  Age: 70 Year
  Sex: Female

DRUGS (2)
  1. XIIDRA [Suspect]
     Active Substance: LIFITEGRAST
     Dosage: 1 GTT, 2X/DAY:BID 5% SOLUTION
     Route: 047
     Dates: start: 2018, end: 20181206
  2. XIIDRA [Suspect]
     Active Substance: LIFITEGRAST
     Indication: DRY EYE
     Dosage: 1 GTT, 2X/DAY:BID 5% SOLUTION
     Route: 047
     Dates: start: 2018, end: 2018

REACTIONS (7)
  - Drug ineffective [Unknown]
  - Vision blurred [Recovered/Resolved]
  - Conjunctivitis allergic [Recovered/Resolved]
  - Inappropriate schedule of product administration [Recovered/Resolved]
  - Instillation site lacrimation [Not Recovered/Not Resolved]
  - Visual impairment [Unknown]
  - Instillation site reaction [Recovered/Resolved]

NARRATIVE: CASE EVENT DATE: 2018
